FAERS Safety Report 14548750 (Version 1)
Quarter: 2018Q1

REPORT INFORMATION
  Report Type: Spontaneous
  Country: US (occurrence: US)
  Receive Date: 20180219
  Receipt Date: 20180219
  Transmission Date: 20180509
  Serious: No
  Sender: FDA-Public Use
  Company Number: US-ROCHE-1931799

PATIENT
  Age: 76 Year
  Sex: Female
  Weight: 53.12 kg

DRUGS (2)
  1. XOLAIR [Suspect]
     Active Substance: OMALIZUMAB
     Indication: HYPERSENSITIVITY
     Dosage: INJECTION IN THE ARM ;ONGOING: YES
     Route: 058
     Dates: start: 201702
  2. FLUTICASONE PROPIONATE. [Concomitant]
     Active Substance: FLUTICASONE PROPIONATE
     Dosage: 1-2 SNIFFS TWICE DAILY ;ONGOING: YES
     Route: 045
     Dates: start: 20170206

REACTIONS (1)
  - Chest discomfort [Not Recovered/Not Resolved]

NARRATIVE: CASE EVENT DATE: 201703
